FAERS Safety Report 7379247-0 (Version None)
Quarter: 2011Q1

REPORT INFORMATION
  Report Type: 
  Country: None (occurrence: None)
  Receive Date: 20110328
  Receipt Date: 20110322
  Transmission Date: 20110831
  Serious: Yes (Other)
  Sender: FDA-Public Use
  Company Number: CA-SANOFI-AVENTIS-2011SA017455

PATIENT
  Age: 73 Year
  Sex: Male

DRUGS (5)
  1. CRESTOR [Concomitant]
     Route: 048
     Dates: start: 20100901
  2. PLAVIX [Suspect]
     Route: 048
     Dates: start: 20100901
  3. MONOCOR [Concomitant]
     Indication: BLOOD PRESSURE
     Route: 048
  4. ASAPHEN [Concomitant]
     Route: 048
     Dates: start: 20100901
  5. CRESTOR [Concomitant]
     Route: 048
     Dates: end: 20100901

REACTIONS (9)
  - EPISTAXIS [None]
  - MOUTH ULCERATION [None]
  - MYALGIA [None]
  - RED BLOOD CELL ABNORMALITY [None]
  - EYE HAEMORRHAGE [None]
  - FATIGUE [None]
  - ANXIETY [None]
  - DISABILITY [None]
  - QUALITY OF LIFE DECREASED [None]
